FAERS Safety Report 9370351 (Version 1)
Quarter: 2013Q2

REPORT INFORMATION
  Report Type: Spontaneous
  Country: US (occurrence: US)
  Receive Date: 20130626
  Receipt Date: 20130626
  Transmission Date: 20140414
  Serious: Yes (Hospitalization)
  Sender: FDA-Public Use
  Company Number: US-JNJFOC-20130612934

PATIENT
  Age: 56 Year
  Sex: Female

DRUGS (5)
  1. BENADRYL [Suspect]
     Indication: PRODUCT USED FOR UNKNOWN INDICATION
     Route: 065
  2. CARBOPLATIN [Suspect]
     Indication: HEAD AND NECK CANCER METASTATIC
     Route: 065
     Dates: start: 20120913
  3. TEMSIROLIMUS [Suspect]
     Indication: HEAD AND NECK CANCER METASTATIC
     Route: 065
     Dates: start: 20120913
  4. PACLITAXEL [Suspect]
     Indication: HEAD AND NECK CANCER METASTATIC
     Route: 065
     Dates: start: 20120913
  5. OXYCODONE HYDROCHLORIDE [Suspect]
     Indication: PRODUCT USED FOR UNKNOWN INDICATION
     Route: 065

REACTIONS (1)
  - Mental status changes [Recovered/Resolved]
